FAERS Safety Report 9618517 (Version 2)
Quarter: 2013Q4

REPORT INFORMATION
  Report Type: Spontaneous
  Country: US (occurrence: US)
  Receive Date: 20131014
  Receipt Date: 20131122
  Transmission Date: 20140711
  Serious: No
  Sender: FDA-Public Use
  Company Number: US-PFIZER INC-2013290696

PATIENT
  Age: 79 Year
  Sex: Female

DRUGS (2)
  1. SUTENT [Suspect]
     Indication: RENAL CANCER
     Dosage: 50 MG, 1X/DAY
     Dates: start: 20130924
  2. SUTENT [Suspect]
     Dosage: 25 MG, UNK
     Dates: end: 20131008

REACTIONS (4)
  - Confusional state [Unknown]
  - Asthenia [Unknown]
  - Balance disorder [Unknown]
  - Headache [Unknown]
